FAERS Safety Report 16169283 (Version 1)
Quarter: 2019Q2

REPORT INFORMATION
  Report Type: Spontaneous
  Country: US (occurrence: US)
  Receive Date: 20190408
  Receipt Date: 20190408
  Transmission Date: 20190711
  Serious: Yes (Other)
  Sender: FDA-Public Use
  Company Number: US-BAYER-2019-068070

PATIENT
  Sex: Male

DRUGS (5)
  1. ACETYLSALICYLIC ACID (CARDIO) [Suspect]
     Active Substance: ASPIRIN
     Indication: ANTICOAGULANT THERAPY
  2. TICAGRELOR. [Interacting]
     Active Substance: TICAGRELOR
     Indication: ANTICOAGULANT THERAPY
  3. ENOXAPARIN [Interacting]
     Active Substance: ENOXAPARIN
     Indication: ANTICOAGULANT THERAPY
  4. WARFARIN [Interacting]
     Active Substance: WARFARIN
     Indication: ANTICOAGULANT THERAPY
  5. HEPARIN [Concomitant]
     Active Substance: HEPARIN SODIUM

REACTIONS (5)
  - Anaemia [None]
  - Cardiac failure [None]
  - Haematuria [None]
  - Labelled drug-drug interaction medication error [None]
  - Acute kidney injury [None]
